FAERS Safety Report 5503938-7 (Version None)
Quarter: 2007Q4

REPORT INFORMATION
  Report Type: 
  Country: None (occurrence: None)
  Receive Date: 20071030
  Receipt Date: 20071030
  Transmission Date: 20080405
  Serious: Yes (Life-Threatening, Hospitalization)
  Sender: FDA-Public Use
  Company Number: None

PATIENT
  Age: 45 Year
  Sex: Male
  Weight: 95.2554 kg

DRUGS (1)
  1. VANCOMYCIN [Suspect]
     Indication: POST PROCEDURAL INFECTION
     Dosage: INTRAVESICAL
     Route: 043

REACTIONS (8)
  - ADDISON'S DISEASE [None]
  - CARDIAC DISORDER [None]
  - DYSPNOEA [None]
  - GENERALISED OEDEMA [None]
  - HEARING IMPAIRED [None]
  - POST PROCEDURAL INFECTION [None]
  - RASH [None]
  - RED MAN SYNDROME [None]
